FAERS Safety Report 18706577 (Version 1)
Quarter: 2021Q1

REPORT INFORMATION
  Report Type: Spontaneous
  Country: US (occurrence: US)
  Receive Date: 20210105
  Receipt Date: 20210105
  Transmission Date: 20210419
  Serious: Yes (Life-Threatening, Hospitalization, Other)
  Sender: FDA-Public Use
  Company Number: None

PATIENT
  Age: 93 Year
  Sex: Male

DRUGS (1)
  1. OMEPRAZOLE (OMEPRAZOLE 20MG CAP, EC) [Suspect]
     Active Substance: OMEPRAZOLE
     Route: 048
     Dates: start: 20200712, end: 20200929

REACTIONS (4)
  - Acute kidney injury [None]
  - Renal tubular necrosis [None]
  - Nephritis [None]
  - Tubulointerstitial nephritis [None]

NARRATIVE: CASE EVENT DATE: 20200929
